FAERS Safety Report 11989647 (Version 1)
Quarter: 2016Q1

REPORT INFORMATION
  Report Type: Spontaneous
  Country: US (occurrence: US)
  Receive Date: 20160202
  Receipt Date: 20160202
  Transmission Date: 20160526
  Serious: No
  Sender: FDA-Public Use
  Company Number: US-ROCHE-1670491

PATIENT
  Sex: Female

DRUGS (5)
  1. ADVIL [Concomitant]
     Active Substance: IBUPROFEN
     Indication: HER-2 POSITIVE BREAST CANCER
     Dosage: AS NEEDED
     Route: 065
     Dates: end: 201511
  2. PERJETA [Suspect]
     Active Substance: PERTUZUMAB
     Indication: HER-2 POSITIVE BREAST CANCER
     Route: 042
     Dates: start: 20150218
  3. VICODIN [Concomitant]
     Active Substance: ACETAMINOPHEN\HYDROCODONE BITARTRATE
     Indication: PAIN
     Dosage: AS NEEDED DAILY
     Route: 065
     Dates: end: 201511
  4. HERCEPTIN [Suspect]
     Active Substance: TRASTUZUMAB
     Indication: HER-2 POSITIVE BREAST CANCER
     Route: 042
     Dates: start: 20150218
  5. TAXOTERE [Concomitant]
     Active Substance: DOCETAXEL
     Indication: HER-2 POSITIVE BREAST CANCER
     Route: 065
     Dates: end: 20150716

REACTIONS (8)
  - Arthralgia [Unknown]
  - Pain [Unknown]
  - Nail growth abnormal [Unknown]
  - Rhinorrhoea [Unknown]
  - Hair growth abnormal [Unknown]
  - Secretion discharge [Unknown]
  - Sensory loss [Unknown]
  - Paraesthesia [Unknown]
